FAERS Safety Report 5166914-2 (Version None)
Quarter: 2006Q4

REPORT INFORMATION
  Report Type: 
  Country: None (occurrence: None)
  Receive Date: 20061204
  Receipt Date: 20061204
  Transmission Date: 20070319
  Serious: No
  Sender: FDA-Public Use
  Company Number: None

PATIENT
  Age: 56 Year
  Sex: Male
  Weight: 127.0072 kg

DRUGS (1)
  1. OXALIPLATIN [Suspect]
     Indication: COLON CANCER

REACTIONS (2)
  - GAIT DISTURBANCE [None]
  - NERVE INJURY [None]
